FAERS Safety Report 9461487 (Version 1)
Quarter: 2013Q3

REPORT INFORMATION
  Report Type: Spontaneous
  Country: US (occurrence: None)
  Receive Date: 20130814
  Receipt Date: 20130814
  Transmission Date: 20140515
  Serious: No
  Sender: FDA-Public Use
  Company Number: None

PATIENT
  Age: 31 Year
  Sex: Female
  Weight: 66.68 kg

DRUGS (4)
  1. GABAPENTIN [Suspect]
     Indication: ANXIETY
     Dosage: 300MG/3PILLS TID 2 AT BEDTIME TAKEN BY MOUTH
     Route: 048
     Dates: start: 20130812
  2. GABAPENTIN [Suspect]
     Indication: DEPRESSION
     Dosage: 300MG/3PILLS TID 2 AT BEDTIME TAKEN BY MOUTH
     Route: 048
     Dates: start: 20130812
  3. PAROXETINE [Suspect]
     Indication: ANXIETY
     Dosage: 1 PILL IN MORNING ONCE DAILY TAKEN BY MOUTH
     Route: 048
     Dates: end: 20130807
  4. PAROXETINE [Suspect]
     Indication: DEPRESSION
     Dosage: 1 PILL IN MORNING ONCE DAILY TAKEN BY MOUTH
     Route: 048
     Dates: end: 20130807

REACTIONS (16)
  - Psychomotor hyperactivity [None]
  - Insomnia [None]
  - Restlessness [None]
  - Heart rate increased [None]
  - Hypertension [None]
  - Thirst [None]
  - Pruritus [None]
  - Diarrhoea [None]
  - Disturbance in attention [None]
  - Thinking abnormal [None]
  - Visual impairment [None]
  - Dyspnoea [None]
  - Anger [None]
  - Weight decreased [None]
  - Dizziness [None]
  - Pyrexia [None]
